FAERS Safety Report 10220873 (Version 1)
Quarter: 2014Q2

REPORT INFORMATION
  Report Type: Spontaneous
  Country: US (occurrence: None)
  Receive Date: 20140605
  Receipt Date: 20140605
  Transmission Date: 20141212
  Serious: Yes (Hospitalization)
  Sender: FDA-Public Use
  Company Number: None

PATIENT
  Age: 5 Year
  Sex: Female
  Weight: 24 kg

DRUGS (1)
  1. PENTAMIDINE [Suspect]
     Indication: PROPHYLAXIS

REACTIONS (13)
  - Pyrexia [None]
  - Infusion related reaction [None]
  - Hypophagia [None]
  - Abdominal pain upper [None]
  - Night sweats [None]
  - Constipation [None]
  - Headache [None]
  - Tremor [None]
  - Body temperature decreased [None]
  - Alopecia [None]
  - Respiratory rate increased [None]
  - Parvovirus infection [None]
  - Blood potassium decreased [None]
